FAERS Safety Report 8932442 (Version 1)
Quarter: 2012Q4

REPORT INFORMATION
  Report Type: 
  Country: JP (occurrence: JP)
  Receive Date: 20121128
  Receipt Date: 20121128
  Transmission Date: 20130627
  Serious: Yes (Hospitalization)
  Sender: FDA-Public Use
  Company Number: JP-ELI_LILLY_AND_COMPANY-JP201103003031

PATIENT
  Age: 82 Year
  Sex: Female

DRUGS (3)
  1. FORTEO [Suspect]
     Dosage: UNK
     Route: 058
     Dates: end: 201201
  2. FORTEO [Suspect]
     Dosage: UNK
     Route: 058
     Dates: start: 2012, end: 201207
  3. FORTEO [Suspect]
     Dosage: UNK
     Dates: start: 201207

REACTIONS (7)
  - Limb operation [Recovered/Resolved]
  - Tinnitus [Unknown]
  - Visual acuity reduced [Unknown]
  - Decreased appetite [Unknown]
  - Local swelling [Unknown]
  - Malaise [Unknown]
  - Nausea [Unknown]
